FAERS Safety Report 6973880-3 (Version None)
Quarter: 2010Q3

REPORT INFORMATION
  Report Type: 
  Country: None (occurrence: None)
  Receive Date: 20100909
  Receipt Date: 20100901
  Transmission Date: 20110219
  Serious: Yes (Other)
  Sender: FDA-Public Use
  Company Number: B0673757A

PATIENT
  Age: 3 Year
  Sex: Female

DRUGS (2)
  1. AUGMENTIN '125' [Suspect]
     Indication: TONSILLITIS
     Dosage: 125MG THREE TIMES PER DAY
  2. CELESTONE [Concomitant]

REACTIONS (1)
  - DIARRHOEA HAEMORRHAGIC [None]
